FAERS Safety Report 6626790-5 (Version None)
Quarter: 2010Q1

REPORT INFORMATION
  Report Type: 
  Country: None (occurrence: None)
  Receive Date: 20100311
  Receipt Date: 20100301
  Transmission Date: 20100710
  Serious: Yes (Hospitalization)
  Sender: FDA-Public Use
  Company Number: US-BIOGENIDEC-2010BI007075

PATIENT
  Age: 52 Year
  Sex: Female

DRUGS (2)
  1. AVONEX [Suspect]
     Indication: MULTIPLE SCLEROSIS
     Route: 030
  2. PAIN PUMP (NOS) [Concomitant]

REACTIONS (7)
  - BALANCE DISORDER [None]
  - DYSSTASIA [None]
  - FALL [None]
  - FOOT FRACTURE [None]
  - HIP FRACTURE [None]
  - UPPER LIMB FRACTURE [None]
  - WEIGHT GAIN POOR [None]
